FAERS Safety Report 13837290 (Version 1)
Quarter: 2017Q3

REPORT INFORMATION
  Report Type: Spontaneous
  Country: US (occurrence: US)
  Receive Date: 20170804
  Receipt Date: 20170804
  Transmission Date: 20171127
  Serious: No
  Sender: FDA-Public Use
  Company Number: US-ROCHE-551757

PATIENT
  Age: 74 Year
  Sex: Female

DRUGS (4)
  1. DIOVAN [Concomitant]
     Active Substance: VALSARTAN
     Route: 065
  2. BONIVA [Suspect]
     Active Substance: IBANDRONATE SODIUM
     Indication: OSTEOPENIA
     Route: 065
  3. VITAMINS NOS [Concomitant]
     Active Substance: VITAMINS
     Route: 065
  4. NASAL SPRAY NOS [Concomitant]
     Dosage: DRUG REPORTED AS: NOSE SPRAY
     Route: 065

REACTIONS (4)
  - Pain in extremity [Recovering/Resolving]
  - Pain in jaw [Unknown]
  - Dyspepsia [Not Recovered/Not Resolved]
  - Arthralgia [Recovering/Resolving]

NARRATIVE: CASE EVENT DATE: 20071215
